FAERS Safety Report 22600555 (Version 1)
Quarter: 2023Q2

REPORT INFORMATION
  Report Type: Spontaneous
  Country: CN (occurrence: None)
  Receive Date: 20230614
  Receipt Date: 20230614
  Transmission Date: 20230722
  Serious: Yes (Hospitalization)
  Sender: FDA-Public Use
  Company Number: CN-Merck Healthcare KGaA-9408359

PATIENT
  Age: 35 Year
  Sex: Female
  Weight: 47 kg

DRUGS (7)
  1. GONAL-F [Suspect]
     Active Substance: FOLLITROPIN
     Indication: In vitro fertilisation
     Route: 058
     Dates: start: 20230513, end: 20230522
  2. GONAL-F [Suspect]
     Active Substance: FOLLITROPIN
     Indication: Ovulation induction
  3. CHORIONIC GONADOTROPHIN [Suspect]
     Active Substance: CHORIOGONADOTROPIN ALFA
     Indication: In vitro fertilisation
     Route: 030
     Dates: start: 20230524, end: 20230524
  4. CHORIONIC GONADOTROPHIN [Suspect]
     Active Substance: CHORIOGONADOTROPIN ALFA
     Indication: Ovulation induction
  5. UROFOLLITROPIN [Suspect]
     Active Substance: UROFOLLITROPIN
     Indication: In vitro fertilisation
     Route: 030
     Dates: start: 20230524, end: 20230524
  6. UROFOLLITROPIN [Suspect]
     Active Substance: UROFOLLITROPIN
     Indication: Ovulation induction
  7. SODIUM CHLORIDE [Concomitant]
     Active Substance: SODIUM CHLORIDE
     Indication: Vehicle solution use
     Route: 030
     Dates: start: 20230524, end: 20230524

REACTIONS (12)
  - Haemoglobin decreased [Recovering/Resolving]
  - Palpitations [Recovering/Resolving]
  - Tension [Recovering/Resolving]
  - Retching [Recovering/Resolving]
  - Chest discomfort [Recovering/Resolving]
  - Urine output decreased [Recovering/Resolving]
  - Nausea [Recovering/Resolving]
  - Abdominal distension [Recovering/Resolving]
  - Abdominal pain [Recovering/Resolving]
  - Ovarian hyperstimulation syndrome [Recovering/Resolving]
  - Alanine aminotransferase increased [Recovering/Resolving]
  - Aspartate aminotransferase increased [Recovering/Resolving]

NARRATIVE: CASE EVENT DATE: 20230529
